FAERS Safety Report 5249291-8 (Version None)
Quarter: 2007Q1

REPORT INFORMATION
  Report Type: 
  Country: None (occurrence: None)
  Receive Date: 20070228
  Receipt Date: 20070221
  Transmission Date: 20070707
  Serious: Yes (Hospitalization)
  Sender: FDA-Public Use
  Company Number: BE-JNJFOC-20070200181

PATIENT
  Sex: Female

DRUGS (5)
  1. REMICADE [Suspect]
     Route: 042
  2. REMICADE [Suspect]
     Route: 042
  3. REMICADE [Suspect]
     Indication: CROHN'S DISEASE
     Dosage: THE NEXT DOSE WAS SCHEDULED FOR 30-NOV-2006, BUT IT WAS POSTPONED DUE TO THE EVENT
     Route: 042
  4. IMURAN [Concomitant]
     Route: 048
  5. COLITOFALK [Concomitant]

REACTIONS (5)
  - ABSCESS [None]
  - CROHN'S DISEASE [None]
  - GASTROINTESTINAL ANASTOMOTIC LEAK [None]
  - ILEOSTOMY [None]
  - INTESTINAL RESECTION [None]
